FAERS Safety Report 4441974-2 (Version None)
Quarter: 2004Q3

REPORT INFORMATION
  Report Type: 
  Country: None (occurrence: None)
  Receive Date: 20040907
  Receipt Date: 20040806
  Transmission Date: 20050211
  Serious: Yes (Disabling)
  Sender: FDA-Public Use
  Company Number: JP-GLAXOSMITHKLINE-B0342116A

PATIENT
  Age: 66 Year
  Sex: Female
  Weight: 38 kg

DRUGS (4)
  1. ZANTAC [Suspect]
     Indication: GASTRITIS
     Dosage: 150MG PER DAY
     Route: 048
     Dates: start: 20040506, end: 20040528
  2. ACTONEL [Suspect]
     Indication: OSTEOPOROSIS
     Dosage: 2.5MG PER DAY
     Route: 048
     Dates: start: 20040507, end: 20040510
  3. CYANOCOBALAMIN [Concomitant]
     Route: 048
     Dates: start: 20040514, end: 20040101
  4. PLATIBIT [Concomitant]
     Dosage: 1U PER DAY
     Route: 048
     Dates: start: 20040514

REACTIONS (6)
  - BACK PAIN [None]
  - BLOOD ALKALINE PHOSPHATASE INCREASED [None]
  - GAMMA-GLUTAMYLTRANSFERASE INCREASED [None]
  - HYPOAESTHESIA [None]
  - ILLUSION [None]
  - SENSORY DISTURBANCE [None]
